FAERS Safety Report 8065237-1 (Version None)
Quarter: 2012Q1

REPORT INFORMATION
  Report Type: 
  Country: None (occurrence: None)
  Receive Date: 20120124
  Receipt Date: 20120116
  Transmission Date: 20120608
  Serious: Yes (Hospitalization)
  Sender: FDA-Public Use
  Company Number: US-BAYER-2011-074652

PATIENT
  Age: 20 Year
  Sex: Female
  Weight: 161 kg

DRUGS (6)
  1. ASTHMA MEDICATIONS [Concomitant]
     Dosage: UNK
     Dates: start: 20020101
  2. CYMBALTA [Concomitant]
     Dosage: 60 MG, UNK
     Route: 048
  3. YAZ [Suspect]
     Indication: ACNE
  4. SEROQUEL [Concomitant]
     Indication: DEPRESSION
     Dosage: 200 MG, UNK
     Route: 048
  5. YAZ [Suspect]
     Indication: CONTRACEPTION
     Dosage: UNK
     Dates: start: 20070601, end: 20080701
  6. SEROQUEL [Concomitant]
     Indication: POST-TRAUMATIC STRESS DISORDER

REACTIONS (2)
  - PULMONARY EMBOLISM [None]
  - INJURY [None]
